FAERS Safety Report 4660975-2 (Version None)
Quarter: 2005Q2

REPORT INFORMATION
  Report Type: 
  Country: None (occurrence: None)
  Receive Date: 20050511
  Receipt Date: 20050425
  Transmission Date: 20051028
  Serious: Yes (Hospitalization)
  Sender: FDA-Public Use
  Company Number: 8010302

PATIENT
  Age: 2 Day
  Sex: Female

DRUGS (13)
  1. LEVETIRACETAM [Suspect]
     Indication: EPILEPSY
     Dosage: TRP
     Route: 064
  2. TEGRETOL [Suspect]
     Dosage: TRP
     Route: 064
  3. KLONOPIN [Suspect]
     Dosage: TRP
     Route: 064
  4. CLOZARIL [Suspect]
     Dosage: TRP
     Route: 064
  5. DIAZEPAM [Suspect]
     Dosage: TRP
     Route: 064
  6. NEURONTIN [Suspect]
     Dosage: TRP
     Route: 064
  7. LAMICTAL [Suspect]
     Dosage: TRP
     Route: 064
  8. TRILEPTAL [Suspect]
     Dosage: TRP
     Route: 064
  9. PHENOBARBITAL [Suspect]
     Dosage: TRP
     Route: 064
  10. DILANTIN [Suspect]
     Dosage: TRP
     Route: 064
  11. TOPAMAX [Suspect]
     Dosage: TRP
     Route: 064
  12. TRIDIONE [Suspect]
     Dosage: TRP
     Route: 064
  13. DEPAKOTE [Suspect]
     Dosage: TRP
     Route: 064

REACTIONS (2)
  - CONVULSION NEONATAL [None]
  - DRUG EXPOSURE DURING PREGNANCY [None]
